FAERS Safety Report 13988842 (Version 1)
Quarter: 2017Q3

REPORT INFORMATION
  Report Type: Spontaneous
  Country: US (occurrence: US)
  Receive Date: 20170919
  Receipt Date: 20170919
  Transmission Date: 20171128
  Serious: Yes (Other)
  Sender: FDA-Public Use
  Company Number: None

PATIENT
  Age: 63 Year
  Sex: Female
  Weight: 65.25 kg

DRUGS (1)
  1. ALEVE [Suspect]
     Active Substance: NAPROXEN SODIUM
     Indication: PAIN
     Route: 048
     Dates: start: 20170915, end: 20170917

REACTIONS (6)
  - Haematochezia [None]
  - Faeces hard [None]
  - Headache [None]
  - Nausea [None]
  - Abdominal pain upper [None]
  - Gastric dilatation [None]

NARRATIVE: CASE EVENT DATE: 20170919
